FAERS Safety Report 8878545 (Version 1)
Quarter: 2012Q4

REPORT INFORMATION
  Report Type: 
  Country: US (occurrence: US)
  Receive Date: 20121025
  Receipt Date: 20121025
  Transmission Date: 20130627
  Serious: No
  Sender: FDA-Public Use
  Company Number: US-AMGEN-USASP2012013097

PATIENT
  Age: 20 Year
  Sex: Male
  Weight: 156 kg

DRUGS (2)
  1. ENBREL [Suspect]
     Indication: PSORIATIC ARTHROPATHY
     Dosage: 50 mg, qwk
     Route: 058
     Dates: start: 2008
  2. ENBREL [Suspect]
     Indication: PSORIASIS

REACTIONS (1)
  - Haematuria [Recovered/Resolved]
